FAERS Safety Report 7842541-0 (Version None)
Quarter: 2011Q4

REPORT INFORMATION
  Report Type: 
  Country: None (occurrence: None)
  Receive Date: 20111025
  Receipt Date: 20111020
  Transmission Date: 20120403
  Serious: Yes (Hospitalization, Other)
  Sender: FDA-Public Use
  Company Number: SE-PFIZER INC-2011214909

PATIENT
  Age: 25 Year
  Sex: Female
  Weight: 60 kg

DRUGS (3)
  1. LYRICA [Suspect]
     Indication: ANXIETY DISORDER
     Dosage: 150 MG, 2X/DAY
     Route: 048
     Dates: start: 20110904
  2. LYRICA [Suspect]
     Dosage: 4.2 G (56 CAPSULES OF 75 MG)
  3. ZOLPIDEM TARTRATE [Concomitant]
     Dosage: 10 MG, 1X/DAY

REACTIONS (5)
  - VISUAL IMPAIRMENT [None]
  - TOXICITY TO VARIOUS AGENTS [None]
  - INTENTIONAL OVERDOSE [None]
  - DIPLOPIA [None]
  - SUICIDE ATTEMPT [None]
